FAERS Safety Report 4269635-3 (Version None)
Quarter: 2004Q1

REPORT INFORMATION
  Report Type: 
  Country: None (occurrence: None)
  Receive Date: 20040109
  Receipt Date: 20031229
  Transmission Date: 20041129
  Serious: Yes (Hospitalization)
  Sender: FDA-Public Use
  Company Number: 2003127203

PATIENT
  Age: 74 Year
  Sex: Male

DRUGS (2)
  1. DILANTIN [Suspect]
     Indication: ILL-DEFINED DISORDER
  2. PHENYTOIN [Suspect]
     Indication: ILL-DEFINED DISORDER

REACTIONS (2)
  - DRUG INEFFECTIVE [None]
  - DRUG LEVEL DECREASED [None]
